FAERS Safety Report 12494872 (Version 1)
Quarter: 2016Q2

REPORT INFORMATION
  Report Type: Spontaneous
  Country: US (occurrence: None)
  Receive Date: 20160623
  Receipt Date: 20160623
  Transmission Date: 20160815
  Serious: Yes (Death, Hospitalization)
  Sender: FDA-Public Use
  Company Number: None

PATIENT
  Age: 62 Year
  Sex: Male
  Weight: 104 kg

DRUGS (3)
  1. RITUXIMAB (MOAB C2B8 ANTI CD20, CHIMERIC) [Suspect]
     Active Substance: RITUXIMAB
     Dates: end: 20120507
  2. VELCADE [Suspect]
     Active Substance: BORTEZOMIB
     Dates: end: 20120217
  3. BENDAMUSTINE HYDROCHLORIDE. [Suspect]
     Active Substance: BENDAMUSTINE HYDROCHLORIDE
     Dates: end: 20120508

REACTIONS (4)
  - Intracranial mass [None]
  - Tremor [None]
  - Progressive multifocal leukoencephalopathy [None]
  - JC virus test positive [None]

NARRATIVE: CASE EVENT DATE: 20151207
